FAERS Safety Report 6172124-2 (Version None)
Quarter: 2009Q2

REPORT INFORMATION
  Report Type: 
  Country: None (occurrence: None)
  Receive Date: 20090428
  Receipt Date: 20090428
  Transmission Date: 20091009
  Serious: Yes (Other)
  Sender: FDA-Public Use
  Company Number: None

PATIENT
  Sex: Male
  Weight: 97.0698 kg

DRUGS (2)
  1. CIPROFLOXACIN [Suspect]
     Indication: PROSTATITIS
     Dosage: 750 MG TWICE DAILY PO
     Route: 048
     Dates: start: 20090201, end: 20090427
  2. LEVOTHYROXINE SODIUM [Suspect]
     Indication: HYPOTHYROIDISM
     Dosage: 175 MCG ONCE DAILY PO
     Route: 048
     Dates: start: 20020101, end: 20090427

REACTIONS (1)
  - HYPOTHYROIDISM [None]
